FAERS Safety Report 4397532-1 (Version None)
Quarter: 2004Q2

REPORT INFORMATION
  Report Type: 
  Country: None (occurrence: None)
  Receive Date: 20040621
  Receipt Date: 20040107
  Transmission Date: 20050107
  Serious: Yes (Death)
  Sender: FDA-Public Use
  Company Number: USA-2004-0012477

PATIENT
  Age: 30 Year
  Sex: Female

DRUGS (1)
  1. OXYCONTIN [Suspect]
     Dosage: UNK UNK, UNK, UNKNOWN
     Route: 065

REACTIONS (2)
  - DRUG ABUSER [None]
  - OVERDOSE [None]
